FAERS Safety Report 4596682-4 (Version None)
Quarter: 2005Q1

REPORT INFORMATION
  Report Type: 
  Country: None (occurrence: None)
  Receive Date: 20050228
  Receipt Date: 20040609
  Transmission Date: 20050727
  Serious: Yes (Life-Threatening, Hospitalization)
  Sender: FDA-Public Use
  Company Number: 8162

PATIENT
  Age: 64 Year
  Sex: Male

DRUGS (12)
  1. METHOTREXATE [Suspect]
     Indication: RHEUMATOID ARTHRITIS
     Dosage: 6 MG WEEKLY
     Route: 048
     Dates: start: 20030822, end: 20040504
  2. FAMOTIDINE [Concomitant]
  3. FUROSEMIDE [Concomitant]
  4. BETAMETHASONE [Concomitant]
  5. TRIAZOLAM [Concomitant]
  6. NAPROXEN [Concomitant]
  7. ALENDRONATE SODIUM [Concomitant]
  8. DICLOFENAC [Concomitant]
  9. PRAVASTATIN [Concomitant]
  10. ACETYLSALICYLIC ACID/ALUMINUM GLYCINATE/MAGNESIUM CARBONATE [Concomitant]
  11. METFORMIN HCL [Concomitant]
  12. GLIBENCLAMIDE [Concomitant]

REACTIONS (6)
  - CARDIAC FAILURE [None]
  - INTERSTITIAL LUNG DISEASE [None]
  - LYMPHOCYTE STIMULATION TEST POSITIVE [None]
  - MYOCARDIAL INFARCTION [None]
  - PNEUMOCYSTIS JIROVECI PNEUMONIA [None]
  - PNEUMONIA CYTOMEGALOVIRAL [None]
